FAERS Safety Report 8272375-7 (Version None)
Quarter: 2012Q2

REPORT INFORMATION
  Report Type: 
  Country: None (occurrence: None)
  Receive Date: 20120410
  Receipt Date: 20120405
  Transmission Date: 20120825
  Serious: Yes (Disabling, Other)
  Sender: FDA-Public Use
  Company Number: US-PFIZER INC-2012087165

PATIENT
  Sex: Male
  Weight: 100 kg

DRUGS (4)
  1. HUMALOG [Concomitant]
     Indication: DIABETES MELLITUS
     Dosage: 14 IU 2X/DAY AND 12 IU DAILY DURING LUNCH TIME
  2. LANTUS [Concomitant]
     Indication: DIABETES MELLITUS
     Dosage: 45 IU, DAILY
  3. TOPROL-XL [Concomitant]
     Indication: HYPERTENSION
     Dosage: 50 MG, DAILY
  4. LIPITOR [Suspect]
     Indication: BLOOD CHOLESTEROL INCREASED
     Dosage: 10 MG, DAILY
     Route: 048

REACTIONS (4)
  - CATARACT [None]
  - VISION BLURRED [None]
  - BLINDNESS [None]
  - INTRAOCULAR PRESSURE INCREASED [None]
